FAERS Safety Report 24809871 (Version 1)
Quarter: 2025Q1

REPORT INFORMATION
  Report Type: Spontaneous
  Country: US (occurrence: None)
  Receive Date: 20250103
  Receipt Date: 20250103
  Transmission Date: 20250409
  Serious: Yes (Other)
  Sender: FDA-CTU
  Company Number: None

PATIENT
  Age: 69 Year
  Sex: Male

DRUGS (11)
  1. TREMFYA [Suspect]
     Active Substance: GUSELKUMAB
     Indication: Psoriasis
     Route: 058
     Dates: end: 20250102
  2. Potassium Chloride 20mEq ER tabs [Concomitant]
  3. Prednisone 10mg tabs [Concomitant]
  4. Ethacrynic Acid 25mg tabs [Concomitant]
  5. Tamsulosin 0.4mg caps [Concomitant]
  6. Finasteride 5mg tabs [Concomitant]
  7. ELIQUIS [Concomitant]
     Active Substance: APIXABAN
  8. Flecainide 150mg tabs [Concomitant]
  9. Rosuvastatin 5mg tabs [Concomitant]
  10. METFORMIN HYDROCHLORIDE [Concomitant]
     Active Substance: METFORMIN HYDROCHLORIDE
  11. TACROLIMUS [Concomitant]
     Active Substance: TACROLIMUS

REACTIONS (1)
  - Lymphoma [None]

NARRATIVE: CASE EVENT DATE: 20250102
